FAERS Safety Report 21082121 (Version 1)
Quarter: 2022Q3

REPORT INFORMATION
  Report Type: Spontaneous
  Country: JP (occurrence: JP)
  Receive Date: 20220714
  Receipt Date: 20220714
  Transmission Date: 20221026
  Serious: Yes (Other)
  Sender: FDA-Public Use
  Company Number: JP-PFIZER INC-PV202200015677

PATIENT
  Age: 71 Year
  Sex: Male

DRUGS (4)
  1. METHOTREXATE SODIUM [Suspect]
     Active Substance: METHOTREXATE SODIUM
     Indication: Lymphoma
  2. ACETAZOLAMIDE [Concomitant]
     Active Substance: ACETAZOLAMIDE
  3. SODIUM BICARBONATE [Concomitant]
     Active Substance: SODIUM BICARBONATE
  4. LEUCOVORIN [Concomitant]
     Active Substance: LEUCOVORIN

REACTIONS (4)
  - Acute kidney injury [Recovering/Resolving]
  - Toxicity to various agents [Recovering/Resolving]
  - Full blood count abnormal [Recovering/Resolving]
  - Hepatic function abnormal [Recovering/Resolving]
